FAERS Safety Report 21927966 (Version 2)
Quarter: 2023Q1

REPORT INFORMATION
  Report Type: Spontaneous
  Country: US (occurrence: US)
  Receive Date: 20230130
  Receipt Date: 20230227
  Transmission Date: 20230418
  Serious: No
  Sender: FDA-Public Use
  Company Number: US-Calliditas-2023CAL00065

PATIENT
  Age: 55 Year
  Sex: Male

DRUGS (2)
  1. TARPEYO [Suspect]
     Active Substance: BUDESONIDE
     Indication: IgA nephropathy
     Dosage: 8 MG (4 MG CAPSULES) ONCE DAILY PATIENT STATED HE WAS REDUCED TO 8 MG ON 24-NOV-2022 FOR ABOUT 1 ...
     Route: 048
     Dates: start: 20220623, end: 20221224
  2. TARPEYO [Suspect]
     Active Substance: BUDESONIDE
     Indication: IgA nephropathy
     Dosage: 4 MG (4 MG CAPSULES) ONCE DAILY THEN TAPERED TO 4 MG THREE TIMES A WEEK, THEN 4 MG TWICE A WEEK.
     Route: 048
     Dates: start: 20221224, end: 20230123

REACTIONS (8)
  - Anxiety [Recovered/Resolved]
  - Prescribed underdose [Unknown]
  - Hypertension [Recovered/Resolved]
  - Fatigue [Recovering/Resolving]
  - Lower respiratory tract infection [Recovered/Resolved]
  - Pyrexia [Recovered/Resolved]
  - Night sweats [Recovered/Resolved]
  - Lymphopenia [Not Recovered/Not Resolved]

NARRATIVE: CASE EVENT DATE: 20230126
